FAERS Safety Report 5270824-X (Version None)
Quarter: 2007Q1

REPORT INFORMATION
  Report Type: 
  Country: None (occurrence: None)
  Receive Date: 20070321
  Receipt Date: 20070316
  Transmission Date: 20070707
  Serious: Yes (Hospitalization)
  Sender: FDA-Public Use
  Company Number: JP-JNJFOC-20070302743

PATIENT
  Sex: Male
  Weight: 62 kg

DRUGS (4)
  1. PALIPERIDONE [Suspect]
     Route: 048
  2. PALIPERIDONE [Suspect]
     Indication: SCHIZOPHRENIA
     Route: 048
  3. RILMAZAFONE HYDROCHLORIDE [Concomitant]
     Indication: INSOMNIA
  4. TRIAZOLAM [Concomitant]
     Indication: INSOMNIA

REACTIONS (1)
  - SCHIZOPHRENIA [None]
